FAERS Safety Report 6907400-6 (Version None)
Quarter: 2010Q3

REPORT INFORMATION
  Report Type: 
  Country: None (occurrence: None)
  Receive Date: 20100805
  Receipt Date: 20100802
  Transmission Date: 20110219
  Serious: Yes (Other)
  Sender: FDA-Public Use
  Company Number: US-ASTRAZENECA-2007UW09461

PATIENT
  Age: 48 Year
  Sex: Male

DRUGS (7)
  1. SEROQUEL [Suspect]
     Indication: BIPOLAR DISORDER
     Dosage: 150-800 MG
     Route: 048
     Dates: start: 20031222, end: 20060201
  2. SEROQUEL [Suspect]
     Indication: SCHIZOPHRENIA
     Dosage: 150-800 MG
     Route: 048
     Dates: start: 20031222, end: 20060201
  3. SEROQUEL [Suspect]
     Dosage: 50 MG - 600 MG
     Route: 048
     Dates: start: 20031223
  4. SEROQUEL [Suspect]
     Dosage: 50 MG - 600 MG
     Route: 048
     Dates: start: 20031223
  5. NAVANE [Concomitant]
     Dates: start: 20050101, end: 20060101
  6. OXYCONTIN [Concomitant]
     Dosage: 160 MG - 240 MG
     Dates: start: 20031219
  7. CLONAZEPAM [Concomitant]
     Dosage: 2 MG THREE TIMES A DAY AS NEEDED
     Route: 048
     Dates: start: 20031219

REACTIONS (3)
  - MALAISE [None]
  - NEUROPATHY PERIPHERAL [None]
  - TYPE 2 DIABETES MELLITUS [None]
